FAERS Safety Report 6270428-6 (Version None)
Quarter: 2009Q3

REPORT INFORMATION
  Report Type: 
  Country: None (occurrence: None)
  Receive Date: 20090716
  Receipt Date: 20090708
  Transmission Date: 20100115
  Serious: Yes (Hospitalization, Other)
  Sender: FDA-Public Use
  Company Number: PHHY2009PL28333

PATIENT
  Age: 66 Year
  Sex: Male

DRUGS (3)
  1. CYCLOSPORINE [Suspect]
     Indication: RENAL TRANSPLANT
     Dosage: UNK
  2. MYCOPHENOLATE MOFETIL [Suspect]
     Indication: RENAL TRANSPLANT
     Dosage: UNK
  3. PREDNISONE TAB [Suspect]
     Indication: RENAL TRANSPLANT
     Dosage: UNK

REACTIONS (15)
  - ABDOMINAL DISTENSION [None]
  - ASCITES [None]
  - COMPLICATIONS OF TRANSPLANTED KIDNEY [None]
  - CYTOMEGALOVIRUS INFECTION [None]
  - DYSPNOEA EXERTIONAL [None]
  - FATIGUE [None]
  - HEPATOMEGALY [None]
  - HYPOTENSION [None]
  - JUGULAR VEIN DISTENSION [None]
  - KIDNEY TRANSPLANT REJECTION [None]
  - OEDEMA PERIPHERAL [None]
  - PERICARDIAL CALCIFICATION [None]
  - PERICARDIAL EXCISION [None]
  - PERICARDITIS CONSTRICTIVE [None]
  - RENAL IMPAIRMENT [None]
